FAERS Safety Report 8290422-3 (Version None)
Quarter: 2012Q2

REPORT INFORMATION
  Report Type: 
  Country: None (occurrence: None)
  Receive Date: 20120413
  Receipt Date: 20120413
  Transmission Date: 20120825
  Serious: Yes (Hospitalization)
  Sender: FDA-Public Use
  Company Number: None

PATIENT
  Age: 41 Year
  Sex: Female

DRUGS (4)
  1. REVLIMID [Suspect]
     Indication: MULTIPLE MYELOMA
     Dosage: 10MG 3 TIMES WEEKLY ORALLY
     Route: 048
     Dates: start: 20111104, end: 20111129
  2. FLONASE [Concomitant]
  3. ACYCLOVIR [Concomitant]
  4. ANTIVAN [Concomitant]

REACTIONS (4)
  - SYNCOPE [None]
  - HYPOTENSION [None]
  - ANAEMIA [None]
  - RASH [None]
